FAERS Safety Report 5925659-9 (Version None)
Quarter: 2008Q4

REPORT INFORMATION
  Report Type: 
  Country: None (occurrence: None)
  Receive Date: 20081016
  Receipt Date: 20081003
  Transmission Date: 20090506
  Serious: Yes (Other)
  Sender: FDA-Public Use
  Company Number: GXKR2008NL09483

PATIENT
  Age: 44 Year
  Sex: Male

DRUGS (7)
  1. AZATHIOPRINE [Suspect]
     Indication: IMMUNOSUPPRESSION
  2. PREDNISOLONE [Suspect]
     Indication: IMMUNOSUPPRESSION
  3. METHYLPREDNISOLONE [Suspect]
     Indication: IMMUNOSUPPRESSION
     Dosage: 1000 MG, ORAL
     Route: 048
  4. BASILIXIMAB (BASILIXIMAB) [Suspect]
     Indication: IMMUNOSUPPRESSION
  5. TACROLIMUS [Suspect]
     Indication: IMMUNOSUPPRESSION
  6. CELLCEPT [Suspect]
  7. RITUXIMAB (RITUXIMAB) [Concomitant]

REACTIONS (6)
  - EPSTEIN-BARR VIRUS ASSOCIATED LYMPHOPROLIFERATIVE DISORDER [None]
  - MENINGEAL NEOPLASM [None]
  - MUSCULOSKELETAL PAIN [None]
  - PARALYSIS [None]
  - SPINAL CORD COMPRESSION [None]
  - TRANSPLANT REJECTION [None]
